FAERS Safety Report 5191046-7 (Version None)
Quarter: 2006Q4

REPORT INFORMATION
  Report Type: 
  Country: None (occurrence: None)
  Receive Date: 20061226
  Receipt Date: 20061218
  Transmission Date: 20070319
  Serious: Yes (Hospitalization)
  Sender: FDA-Public Use
  Company Number: 2006UW28085

PATIENT
  Age: 58 Year
  Sex: Female
  Weight: 88.6 kg

DRUGS (18)
  1. ROSUVASTATIN [Suspect]
     Indication: DYSLIPIDAEMIA
     Route: 048
     Dates: start: 20060722, end: 20060914
  2. ROSUVASTATIN [Suspect]
     Route: 048
     Dates: start: 20060920
  3. ABT-335 [Suspect]
     Indication: DYSLIPIDAEMIA
     Route: 048
     Dates: start: 20060722, end: 20060914
  4. ABT-335 [Suspect]
     Route: 048
     Dates: start: 20060921
  5. LEVOTHYROXINE SODIUM [Concomitant]
     Indication: HYPOTHYROIDISM
     Route: 048
     Dates: start: 19950101
  6. ASPIRIN [Concomitant]
     Indication: CORONARY ARTERY DISEASE
     Dates: start: 20030317
  7. TOCOPHEROL CONCENTRATE CAP [Concomitant]
     Indication: SUPPLEMENTATION THERAPY
     Dates: start: 20060501
  8. OESTRANORM [Concomitant]
     Indication: HORMONE REPLACEMENT THERAPY
     Dosage: 1.0/0.5 MG DAILY
     Dates: start: 20050501
  9. CYMBALTA [Concomitant]
     Indication: DEPRESSION
     Dates: start: 20050929, end: 20060914
  10. CYMBALTA [Concomitant]
     Dates: start: 20060916, end: 20060919
  11. CYMBALTA [Concomitant]
     Dates: start: 20060920
  12. DYAZIDE [Concomitant]
     Indication: HYPERTENSION
     Dosage: 18.75/12.5 MG DAILY
     Dates: start: 20051103
  13. ACETAMINOPHEN [Concomitant]
     Indication: PHARYNGOLARYNGEAL PAIN
     Dates: start: 20060807, end: 20060807
  14. ACETAMINOPHEN [Concomitant]
     Dates: start: 20060808, end: 20060808
  15. ACETAMINOPHEN [Concomitant]
     Dates: start: 20060812, end: 20060812
  16. CO-ADVIL [Concomitant]
     Indication: NASOPHARYNGITIS
     Dosage: 1 TAB DAILY
     Dates: start: 20060815, end: 20060815
  17. ALEVE COLD AND SINUS [Concomitant]
     Indication: NASOPHARYNGITIS
     Dosage: 1 TABLET DAILY
     Dates: start: 20060817, end: 20060818
  18. VITAMIN CAP [Concomitant]
     Indication: SUPPLEMENTATION THERAPY
     Dosage: 1 TABLET DAILY
     Dates: start: 19950101

REACTIONS (5)
  - GLUCOSE TOLERANCE IMPAIRED [None]
  - HYPERGLYCAEMIA [None]
  - PNEUMONIA PNEUMOCOCCAL [None]
  - SEPSIS [None]
  - STRESS [None]
